FAERS Safety Report 4646780-1 (Version None)
Quarter: 2005Q2

REPORT INFORMATION
  Report Type: 
  Country: None (occurrence: None)
  Receive Date: 20050426
  Receipt Date: 20050426
  Transmission Date: 20051028
  Serious: Yes (Hospitalization)
  Sender: FDA-Public Use
  Company Number: None

PATIENT
  Sex: Male
  Weight: 78.4723 kg

DRUGS (14)
  1. METHOTREXATE [Suspect]
     Indication: RHEUMATOID ARTHRITIS
     Dosage: 25MG  QW   ORAL
     Route: 048
     Dates: start: 20031008, end: 20050211
  2. ALBUTEROL SULFATE AND IPRATROPIUM BROMIDE [Concomitant]
  3. ALBUTEROL SO4 0.083% [Concomitant]
  4. ALPRAZOLAM [Concomitant]
  5. BETAMETHASONE DIPROPIONATE [Concomitant]
  6. DOXYCYCLINE HYCLATE [Concomitant]
  7. FLUNISOLIDE [Concomitant]
  8. FLUTICASONE PROP [Concomitant]
  9. IBUPROFEN [Concomitant]
  10. IPRATROPIUM BR  0.03% NASAL SPRAY [Concomitant]
  11. IPRATROPIUM BROMIDE 0.02% INH SOLN [Concomitant]
  12. NICOTINE [Concomitant]
  13. RANITIDINE HCL [Concomitant]
  14. SODIUM CHLORIDE  0.65% SOLN NASAL SPRAY [Concomitant]

REACTIONS (6)
  - CUTANEOUS VASCULITIS [None]
  - MEASLES [None]
  - OEDEMA PERIPHERAL [None]
  - THERAPY NON-RESPONDER [None]
  - THROMBOCYTOPENIA [None]
  - VASCULITIC RASH [None]
